FAERS Safety Report 7866001-6 (Version None)
Quarter: 2011Q4

REPORT INFORMATION
  Report Type: 
  Country: None (occurrence: None)
  Receive Date: 20111028
  Receipt Date: 20110406
  Transmission Date: 20120403
  Serious: No
  Sender: FDA-Public Use
  Company Number: US-GLAXOSMITHKLINE-A0921645A

PATIENT
  Sex: Male

DRUGS (3)
  1. INSULIN [Concomitant]
  2. ASPIRIN [Concomitant]
  3. ADVAIR DISKUS 100/50 [Suspect]
     Indication: COUGH
     Dosage: 1PUFF TWICE PER DAY
     Route: 055
     Dates: start: 20110405

REACTIONS (1)
  - DIZZINESS [None]
